FAERS Safety Report 13236615 (Version 2)
Quarter: 2017Q1

REPORT INFORMATION
  Report Type: Spontaneous
  Country: AU (occurrence: AU)
  Receive Date: 20170215
  Receipt Date: 20170223
  Transmission Date: 20170428
  Serious: Yes (Hospitalization, Disabling, Other)
  Sender: FDA-Public Use
  Company Number: AU-B.I. PHARMACEUTICALS,INC./RIDGEFIELD-2017-BI-006453

PATIENT
  Age: 46 Year
  Sex: Male

DRUGS (1)
  1. PRADAXA [Suspect]
     Active Substance: DABIGATRAN ETEXILATE MESYLATE
     Indication: PRODUCT USED FOR UNKNOWN INDICATION
     Route: 065

REACTIONS (10)
  - Ischaemic stroke [Unknown]
  - Cerebrovascular accident [Unknown]
  - Bedridden [Unknown]
  - Malaise [Unknown]
  - Treatment failure [Unknown]
  - Hemiparesis [Unknown]
  - Infarction [Unknown]
  - Aphasia [Unknown]
  - Cerebral artery thrombosis [Unknown]
  - Ischaemic stroke [Recovered/Resolved with Sequelae]
